FAERS Safety Report 24141735 (Version 1)
Quarter: 2024Q3

REPORT INFORMATION
  Report Type: Spontaneous
  Country: BY (occurrence: BY)
  Receive Date: 20240726
  Receipt Date: 20240726
  Transmission Date: 20241017
  Serious: Yes (Other)
  Sender: MYLAN
  Company Number: BY-MYLANLABS-2024M1068972

PATIENT
  Age: 69 Year

DRUGS (6)
  1. PRETOMANID [Suspect]
     Active Substance: PRETOMANID
     Indication: Tuberculosis
     Dosage: UNK
     Route: 065
  2. BEDAQUILINE [Suspect]
     Active Substance: BEDAQUILINE
     Indication: Tuberculosis
     Dosage: UNK
     Route: 065
  3. LINEZOLID [Suspect]
     Active Substance: LINEZOLID
     Indication: Tuberculosis
     Dosage: 600 MILLIGRAM, QD
     Route: 065
  4. LINEZOLID [Suspect]
     Active Substance: LINEZOLID
     Dosage: 300 MILLIGRAM, QD
     Route: 065
  5. CLOFAZIMINE [Suspect]
     Active Substance: CLOFAZIMINE
     Indication: Tuberculosis
     Dosage: UNK
     Route: 065
  6. MOXIFLOXACIN [Suspect]
     Active Substance: MOXIFLOXACIN
     Indication: Tuberculosis
     Dosage: UNK
     Route: 065

REACTIONS (2)
  - Acute kidney injury [Recovering/Resolving]
  - Anaemia [Recovering/Resolving]
